FAERS Safety Report 25271501 (Version 2)
Quarter: 2025Q2

REPORT INFORMATION
  Report Type: Spontaneous
  Country: US (occurrence: US)
  Receive Date: 20250506
  Receipt Date: 20250506
  Transmission Date: 20250716
  Serious: No
  Sender: SANDOZ
  Company Number: US-SANDOZ-SDZ2025US026462

PATIENT
  Sex: Female

DRUGS (1)
  1. ALBUTEROL SULFATE [Suspect]
     Active Substance: ALBUTEROL SULFATE
     Indication: Asthma
     Dosage: UNK,  2 PUFFS EVERY 4 HOUR AS NEEDED
     Route: 055
     Dates: start: 2024

REACTIONS (3)
  - Nasopharyngitis [Unknown]
  - Incorrect dose administered by device [Unknown]
  - Device mechanical issue [Unknown]

NARRATIVE: CASE EVENT DATE: 20250101
